FAERS Safety Report 8948174 (Version 2)
Quarter: 2013Q1

REPORT INFORMATION
  Report Type: Spontaneous
  Country: SI (occurrence: None)
  Receive Date: 20121126
  Receipt Date: 20121206
  Transmission Date: 20140127
  Serious: Yes (Other)
  Sender: FDA-Public Use
  Company Number: SI-1195200

PATIENT
  Age: 71 Year
  Sex: Female

DRUGS (1)
  1. BETOPTIC [Suspect]
     Route: 047

REACTIONS (2)
  - Optic disc disorder [None]
  - Scotoma [None]
